FAERS Safety Report 8798304 (Version 1)
Quarter: 2012Q4

REPORT INFORMATION
  Report Type: 
  Country: US (occurrence: US)
  Receive Date: 20120920
  Receipt Date: 20120920
  Transmission Date: 20130627
  Serious: No
  Sender: FDA-Public Use
  Company Number: US-ASTRAZENECA-2012SE61295

PATIENT
  Age: 74 Year
  Sex: Male

DRUGS (8)
  1. SYMBICORT [Suspect]
     Dosage: UNKNOWN
     Route: 055
  2. ULORIC [Concomitant]
  3. METOPROLOL [Concomitant]
  4. LIPITOR [Concomitant]
  5. CEPHALEXIN [Concomitant]
  6. DOXYCILIN [Concomitant]
  7. INDOCIN [Concomitant]
  8. WELCHOL [Concomitant]

REACTIONS (1)
  - Parosmia [Not Recovered/Not Resolved]
